FAERS Safety Report 8187062-3 (Version None)
Quarter: 2012Q1

REPORT INFORMATION
  Report Type: 
  Country: None (occurrence: None)
  Receive Date: 20120301
  Receipt Date: 20120220
  Transmission Date: 20120608
  Serious: Yes (Other)
  Sender: FDA-Public Use
  Company Number: US-1190418

PATIENT
  Age: 86 Year
  Sex: Male
  Weight: 85.2762 kg

DRUGS (9)
  1. ALCAINE [Suspect]
     Indication: INTRAOCULAR LENS IMPLANT
     Dosage: (OPHTHALMIC)
     Route: 047
     Dates: start: 20120206, end: 20120206
  2. BSS [Suspect]
     Indication: INTRAOCULAR LENS IMPLANT
     Dosage: (INTRAOCULAR)
     Dates: start: 20120206, end: 20120206
  3. PHENYLEPHRINE [Concomitant]
  4. TROPICAMIDE [Concomitant]
  5. CYCLOGYL [Suspect]
     Indication: INTRAOCULAR LENS IMPLANT
     Dosage: (OPHTHALMIC)
     Route: 047
     Dates: start: 20120206, end: 20120206
  6. BETADINE [Suspect]
     Indication: INTRAOCULAR LENS IMPLANT
     Dosage: (OPHTHALMIC)
     Route: 047
     Dates: start: 20120206, end: 20120206
  7. ZYMAXID [Concomitant]
  8. BSS PLUS [Suspect]
     Indication: INTRAOCULAR LENS IMPLANT
     Dosage: (INTRAOCULAR)
     Dates: start: 20120206, end: 20120206
  9. OTHER ANTIGLAUCOMA PREPARATIONS [Concomitant]

REACTIONS (2)
  - POST PROCEDURAL COMPLICATION [None]
  - TOXIC ANTERIOR SEGMENT SYNDROME [None]
